FAERS Safety Report 21902512 (Version 2)
Quarter: 2023Q2

REPORT INFORMATION
  Report Type: Report from Study
  Country: US (occurrence: US)
  Receive Date: 20230124
  Receipt Date: 20230613
  Transmission Date: 20230721
  Serious: Yes (Other)
  Sender: FDA-Public Use
  Company Number: US-ARGENX-2022-ARGX-US002474

PATIENT
  Sex: Female
  Weight: 58.957 kg

DRUGS (1)
  1. VYVGART [Suspect]
     Active Substance: EFGARTIGIMOD ALFA-FCAB
     Indication: Myasthenia gravis
     Dosage: UNK
     Route: 042
     Dates: start: 20221110

REACTIONS (3)
  - Superior vena cava syndrome [Not Recovered/Not Resolved]
  - Myasthenia gravis [Recovering/Resolving]
  - Pulmonary mass [Not Recovered/Not Resolved]
